FAERS Safety Report 4911506-0 (Version None)
Quarter: 2006Q1

REPORT INFORMATION
  Report Type: 
  Country: None (occurrence: None)
  Receive Date: 20060113
  Receipt Date: 20051006
  Transmission Date: 20060701
  Serious: No
  Sender: FDA-Public Use
  Company Number: 2005SP003415

PATIENT
  Age: 61 Year
  Sex: Male
  Weight: 90.7194 kg

DRUGS (4)
  1. LUNESTA [Suspect]
     Indication: SLEEP APNOEA SYNDROME
     Dosage: HS; ORAL
     Route: 048
     Dates: start: 20051001, end: 20051001
  2. XYREM [Concomitant]
  3. ATORVASTATIN CALCIUM [Concomitant]
  4. CONTINUOUS POSITIVE AIRWAY PRESSURE [Concomitant]

REACTIONS (3)
  - CONFUSIONAL STATE [None]
  - HYPERHIDROSIS [None]
  - SOMNOLENCE [None]
